FAERS Safety Report 19619998 (Version 1)
Quarter: 2021Q3

REPORT INFORMATION
  Report Type: Spontaneous
  Country: US (occurrence: US)
  Receive Date: 20210728
  Receipt Date: 20210728
  Transmission Date: 20211014
  Serious: No
  Sender: FDA-Public Use
  Company Number: US-ROCHE-2741181

PATIENT
  Sex: Female

DRUGS (2)
  1. XELODA [Suspect]
     Active Substance: CAPECITABINE
     Indication: PRODUCT USED FOR UNKNOWN INDICATION
     Dosage: TWO?WEEK XELODA BREAK
     Route: 065
  2. TUKYSA [Concomitant]
     Active Substance: TUCATINIB

REACTIONS (1)
  - Renal function test abnormal [Unknown]
